FAERS Safety Report 5441206-2 (Version None)
Quarter: 2007Q3

REPORT INFORMATION
  Report Type: 
  Country: None (occurrence: None)
  Receive Date: 20070901
  Receipt Date: 20070822
  Transmission Date: 20080115
  Serious: Yes (Hospitalization, Other)
  Sender: FDA-Public Use
  Company Number: US-PFIZER INC-2007070551

PATIENT
  Sex: Female

DRUGS (5)
  1. DILANTIN [Suspect]
     Indication: CONVULSION
  2. DIFLUCAN [Suspect]
     Route: 048
     Dates: start: 20070723, end: 20070723
  3. LOVASTATIN [Concomitant]
  4. PHENOBARBITAL TAB [Concomitant]
  5. VALIUM [Concomitant]

REACTIONS (7)
  - ACCIDENT [None]
  - ANTICONVULSANT DRUG LEVEL DECREASED [None]
  - BLOOD MAGNESIUM DECREASED [None]
  - CONVULSION [None]
  - MEMORY IMPAIRMENT [None]
  - ORTHODONTIC PROCEDURE [None]
  - STREPTOCOCCAL INFECTION [None]
